FAERS Safety Report 17824837 (Version 1)
Quarter: 2020Q2

REPORT INFORMATION
  Report Type: Spontaneous
  Country: CA (occurrence: CA)
  Receive Date: 20200526
  Receipt Date: 20200526
  Transmission Date: 20200714
  Serious: Yes (Other)
  Sender: FDA-Public Use
  Company Number: CA-TEVA-2020-CA-1238821

PATIENT
  Sex: Male
  Weight: 22 kg

DRUGS (17)
  1. DOXORUBICIN [Suspect]
     Active Substance: DOXORUBICIN
     Indication: LYMPHOCYTIC LEUKAEMIA
     Dosage: 30 MG/M2 DAILY;
     Route: 042
  2. VINCRISTINE SULFATE. [Concomitant]
     Active Substance: VINCRISTINE SULFATE
  3. CLOLAR [Concomitant]
     Active Substance: CLOFARABINE
  4. FLUDARABINE [Concomitant]
     Active Substance: FLUDARABINE PHOSPHATE
  5. AMLODIPINE [Concomitant]
     Active Substance: AMLODIPINE BESYLATE
  6. ATRIANCE [Concomitant]
     Active Substance: NELARABINE
  7. FUROSEMIDE. [Concomitant]
     Active Substance: FUROSEMIDE
  8. CYCLOPHOSPHAMIDE. [Concomitant]
     Active Substance: CYCLOPHOSPHAMIDE
  9. ETOPOSIDE. [Concomitant]
     Active Substance: ETOPOSIDE
  10. MYCOPHENOLATE MOFETIL. [Concomitant]
     Active Substance: MYCOPHENOLATE MOFETIL
  11. SPIRONOLACTONE. [Concomitant]
     Active Substance: SPIRONOLACTONE
  12. CYCLOSPORINE. [Concomitant]
     Active Substance: CYCLOSPORINE
  13. RAPAMUNE [Concomitant]
     Active Substance: SIROLIMUS
  14. CYTARABINE. [Concomitant]
     Active Substance: CYTARABINE
  15. METHOTREXATE. [Concomitant]
     Active Substance: METHOTREXATE
  16. NIFEDIPINE. [Concomitant]
     Active Substance: NIFEDIPINE
  17. L-ASPARAGINASE [Concomitant]
     Active Substance: ASPARAGINASE

REACTIONS (1)
  - Cardiotoxicity [Unknown]
